APPROVED DRUG PRODUCT: DULOXETINE HYDROCHLORIDE
Active Ingredient: DULOXETINE HYDROCHLORIDE
Strength: EQ 20MG BASE
Dosage Form/Route: CAPSULE, DELAYED REL PELLETS;ORAL
Application: A212328 | Product #001 | TE Code: AB
Applicant: SUNSHINE LAKE PHARMA CO LTD
Approved: Feb 11, 2021 | RLD: No | RS: No | Type: RX